FAERS Safety Report 5722585-5 (Version None)
Quarter: 2008Q2

REPORT INFORMATION
  Report Type: 
  Country: None (occurrence: None)
  Receive Date: 20080429
  Receipt Date: 20070806
  Transmission Date: 20081010
  Serious: No
  Sender: FDA-Public Use
  Company Number: US-ASTRAZENECA-2007UW19017

PATIENT
  Age: 85 Year
  Sex: Female
  Weight: 49.9 kg

DRUGS (7)
  1. NEXIUM [Suspect]
     Indication: DYSPEPSIA
     Route: 048
     Dates: start: 20070802, end: 20070804
  2. CREON [Concomitant]
     Indication: PROPHYLAXIS
  3. COREG [Concomitant]
  4. SIMVASTATIN [Concomitant]
     Dosage: MONDAY, WEDNESDAY, FRIDAY
  5. LORAZEPAM [Concomitant]
  6. CLONIDINE HCL [Concomitant]
     Indication: BLOOD PRESSURE
  7. CITRACAL [Concomitant]

REACTIONS (4)
  - ASTHENIA [None]
  - CHILLS [None]
  - NAUSEA [None]
  - STOMACH DISCOMFORT [None]
